FAERS Safety Report 6293828-7 (Version None)
Quarter: 2009Q3

REPORT INFORMATION
  Report Type: 
  Country: None (occurrence: None)
  Receive Date: 20090803
  Receipt Date: 20090724
  Transmission Date: 20100115
  Serious: Yes (Hospitalization)
  Sender: FDA-Public Use
  Company Number: FR-ABBOTT-09P-056-0587331-00

PATIENT
  Sex: Male

DRUGS (5)
  1. DEPAKOTE [Suspect]
     Indication: MANIA
     Route: 048
     Dates: start: 20080925
  2. PIRILENE [Suspect]
     Indication: TUBERCULOSIS
     Dosage: 2000MG DAILY
     Route: 048
     Dates: start: 20081010, end: 20081201
  3. RIFADIN [Suspect]
     Indication: TUBERCULOSIS
     Dosage: 600MG DAILY
     Route: 048
     Dates: start: 20081010, end: 20081201
  4. RIMIFON [Suspect]
     Indication: TUBERCULOSIS
     Route: 048
     Dates: start: 20081010, end: 20081201
  5. DEXAMBUTOL [Suspect]
     Indication: TUBERCULOSIS
     Dosage: 1500MG DAILY
     Route: 048
     Dates: start: 20081010, end: 20081201

REACTIONS (2)
  - CYTOLYTIC HEPATITIS [None]
  - HEPATOCELLULAR INJURY [None]
